FAERS Safety Report 7205691-8 (Version None)
Quarter: 2010Q4

REPORT INFORMATION
  Report Type: 
  Country: None (occurrence: None)
  Receive Date: 20101231
  Receipt Date: 20101216
  Transmission Date: 20110411
  Serious: Yes (Death, Other)
  Sender: FDA-Public Use
  Company Number: GR-CELGENEUS-066-CCAZA-10122309

PATIENT

DRUGS (2)
  1. AZACITIDINE [Suspect]
     Route: 058
  2. AZACITIDINE [Suspect]
     Indication: ACUTE MYELOID LEUKAEMIA

REACTIONS (8)
  - BACTERAEMIA [None]
  - CEREBRAL HAEMORRHAGE [None]
  - COLITIS ISCHAEMIC [None]
  - DEATH [None]
  - ENCEPHALOPATHY [None]
  - LACTIC ACIDOSIS [None]
  - NO THERAPEUTIC RESPONSE [None]
  - PNEUMONIA [None]
